FAERS Safety Report 22368621 (Version 2)
Quarter: 2023Q2

REPORT INFORMATION
  Report Type: Spontaneous
  Country: US (occurrence: US)
  Receive Date: 20230525
  Receipt Date: 20230623
  Transmission Date: 20230721
  Serious: Yes (Other)
  Sender: FDA-Public Use
  Company Number: US-BRISTOL-MYERS SQUIBB COMPANY-2023-071970

PATIENT
  Age: 59 Year
  Sex: Male

DRUGS (1)
  1. LENALIDOMIDE [Suspect]
     Active Substance: LENALIDOMIDE
     Indication: Plasma cell myeloma
     Dosage: 1 CAPSULE WHOLE BY MOUTH WITH WATER AT SAME TIME DAILY ON DAYS 1-21 OF A 28 DAY CYCLE
     Route: 048
     Dates: start: 20220211

REACTIONS (3)
  - Peripheral swelling [Unknown]
  - Chest pain [Recovered/Resolved]
  - Somnolence [Unknown]
